FAERS Safety Report 18105432 (Version 1)
Quarter: 2020Q3

REPORT INFORMATION
  Report Type: Spontaneous
  Country: US (occurrence: US)
  Receive Date: 20200804
  Receipt Date: 20200804
  Transmission Date: 20201103
  Serious: No
  Sender: FDA-Public Use
  Company Number: US-AUROBINDO-AUR-APL-2020-026606

PATIENT
  Age: 79 Year
  Sex: Female

DRUGS (1)
  1. LETROZOLE TABLETS [Suspect]
     Active Substance: LETROZOLE
     Indication: RASH
     Dosage: UNK
     Route: 065
     Dates: start: 201911, end: 201911

REACTIONS (2)
  - Drug eruption [Not Recovered/Not Resolved]
  - Rash [Not Recovered/Not Resolved]

NARRATIVE: CASE EVENT DATE: 201911
